FAERS Safety Report 15398562 (Version 1)
Quarter: 2018Q3

REPORT INFORMATION
  Report Type: Spontaneous
  Country: DE (occurrence: DE)
  Receive Date: 20180918
  Receipt Date: 20180918
  Transmission Date: 20181010
  Serious: Yes (Other)
  Sender: FDA-Public Use
  Company Number: PHHY2018DE099476

PATIENT
  Sex: Male

DRUGS (1)
  1. EXFORGE HCT [Suspect]
     Active Substance: AMLODIPINE BESYLATE\HYDROCHLOROTHIAZIDE\VALSARTAN
     Indication: PRODUCT USED FOR UNKNOWN INDICATION
     Dosage: 1 DF, (10 MG OF AMLODIPINE, 320 MG OF VALSARTAN AND 25 MG OF HYDROCHLOROTHIAZIDE) QD
     Route: 065
     Dates: start: 201808, end: 20180911

REACTIONS (5)
  - Erythema [Unknown]
  - Feeling hot [Unknown]
  - Oedema peripheral [Unknown]
  - Blood pressure increased [Unknown]
  - Blood pressure fluctuation [Unknown]

NARRATIVE: CASE EVENT DATE: 2018
